FAERS Safety Report 24563189 (Version 1)
Quarter: 2024Q4

REPORT INFORMATION
  Report Type: Spontaneous
  Country: NL (occurrence: NL)
  Receive Date: 20241030
  Receipt Date: 20241030
  Transmission Date: 20250115
  Serious: Yes (Hospitalization)
  Sender: JOHNSON AND JOHNSON
  Company Number: None

PATIENT
  Age: 61 Year
  Sex: Female
  Weight: 88.3 kg

DRUGS (21)
  1. TREMFYA [Suspect]
     Active Substance: GUSELKUMAB
     Indication: Psoriatic arthropathy
     Dosage: ELKE 8 WEKEN 1 INJECTIE
     Route: 065
     Dates: start: 20240725
  2. TREMFYA [Suspect]
     Active Substance: GUSELKUMAB
  3. TREMFYA [Suspect]
     Active Substance: GUSELKUMAB
  4. ALFACALCIDOL [Concomitant]
     Active Substance: ALFACALCIDOL
     Dosage: CAPSULE, 0,25 UG (MICROGRAM)
  5. BETAMETHASONE [Concomitant]
     Active Substance: BETAMETHASONE
     Dosage: ZALF, 0,5 MG (MILLIGRAM)/50 UG/G (MICROGRAM PER GRAM)
  6. CHOLECALCIFEROL [Concomitant]
     Active Substance: CHOLECALCIFEROL
     Dosage: KAUWTABLET, 500 MG (MILLIGRAM)/800 EENHEDEN
  7. DALTEPARIN SODIUM [Concomitant]
     Active Substance: DALTEPARIN SODIUM
     Dosage: INJECTIEVLOEISTOF, 25.000 IE/ML (EENHEDEN PER MILLILITER)
  8. FOSFOMYCIN [Concomitant]
     Active Substance: FOSFOMYCIN
     Dosage: ZAKJE (GRANULAAT), 3 G (GRAM)
  9. HYDROXOCOBALAMIN [Concomitant]
     Active Substance: HYDROXOCOBALAMIN
     Dosage: INJECTIEVLOEISTOF, 500 UG/ML (MICROGRAM PER MILLILITER)
  10. NOVORAPID [Concomitant]
     Active Substance: INSULIN ASPART
     Dosage: 300E = 3ML
  11. TOUJEO [Concomitant]
     Active Substance: INSULIN GLARGINE
     Dosage: 450E = 1.5ML
  12. LISINOPRIL [Concomitant]
     Active Substance: LISINOPRIL
     Dosage: TABLET, 5 MG (MILLIGRAM)
  13. MICONAZOLE [Concomitant]
     Active Substance: MICONAZOLE
     Dosage: CREME, 20 MG/G (MILLIGRAM PER GRAM)
  14. PANTOPRAZOLE [Concomitant]
     Active Substance: PANTOPRAZOLE
     Dosage: MAAGSAPRESISTENTE TABLET, 20 MG (MILLIGRAM)
  15. SEMAGLUTIDE [Concomitant]
     Active Substance: SEMAGLUTIDE
     Dosage: TABLET, 14 MG (MILLIGRAM)
  16. SIMVASTATIN [Concomitant]
     Active Substance: SIMVASTATIN
     Dosage: FILMOMHULDE TABLET, 40 MG (MILLIGRAM)
  17. TACROLIMUS [Concomitant]
     Active Substance: TACROLIMUS
     Dosage: CAPSULE MET GEREGULEERDE AFGIFTE, 1 MG (MILLIGRAM)
  18. TAMSULOSIN [Concomitant]
     Active Substance: TAMSULOSIN
     Dosage: CAPSULE MET GEREGULEERDE AFGIFTE, 0,4 MG (MILLIGRAM)
  19. TRIAMCINOLONE ACETONIDE [Concomitant]
     Active Substance: TRIAMCINOLONE ACETONIDE
     Dosage: CREME, 1 MG/G (MILLIGRAM PER GRAM)
  20. PARAFFIN [Concomitant]
     Active Substance: PARAFFIN
     Dosage: ZALF, 500/500 MG/G (MILLIGRAM PER GRAM)
  21. MOVICOLON [Concomitant]
     Active Substance: POLYETHYLENE GLYCOL 3350\POTASSIUM CHLORIDE\SODIUM BICARBONATE\SODIUM CHLORIDE
     Dosage: POEDER VOOR DRANK

REACTIONS (2)
  - Pancytopenia [Recovering/Resolving]
  - Anaemia macrocytic [Recovering/Resolving]
